FAERS Safety Report 8032371-1 (Version None)
Quarter: 2012Q1

REPORT INFORMATION
  Report Type: 
  Country: None (occurrence: None)
  Receive Date: 20120109
  Receipt Date: 20120109
  Transmission Date: 20120608
  Serious: Yes (Hospitalization)
  Sender: FDA-Public Use
  Company Number: None

PATIENT
  Sex: Male
  Weight: 99 kg

DRUGS (7)
  1. FLUOROURACIL [Suspect]
     Dosage: 6242 MG
     Dates: end: 20111213
  2. LEUCOVORIN CALCIUM [Suspect]
     Dosage: 892 MG
     Dates: end: 20111213
  3. ELOXATIN [Suspect]
     Dosage: 190 MG
     Dates: end: 20111213
  4. ACTIVATED CHARCOAL [Concomitant]
  5. IMODIUM [Concomitant]
  6. AMLODIPINE [Concomitant]
  7. ZOFRAN [Concomitant]

REACTIONS (1)
  - ENTEROCOLITIS [None]
